FAERS Safety Report 9639027 (Version 1)
Quarter: 2013Q4

REPORT INFORMATION
  Report Type: Spontaneous
  Country: TR (occurrence: None)
  Receive Date: 20131018
  Receipt Date: 20131018
  Transmission Date: 20140711
  Serious: Yes (Hospitalization)
  Sender: FDA-Public Use
  Company Number: IMP_06843_2013

PATIENT
  Age: 56 Year
  Sex: Female

DRUGS (5)
  1. FENOFIBRATE (FENOFIBRATE) (FENOFIBRATE) [Suspect]
     Indication: PRODUCT USED FOR UNKNOWN INDICATION
  2. INSULIN [Concomitant]
  3. ACETYLSALICYLIC ACID [Concomitant]
  4. FUROSEMIDE [Concomitant]
  5. CARVEDILOL [Concomitant]

REACTIONS (2)
  - Rhabdomyolysis [None]
  - Renal failure [None]
